FAERS Safety Report 6201516-8 (Version None)
Quarter: 2009Q2

REPORT INFORMATION
  Report Type: 
  Country: None (occurrence: None)
  Receive Date: 20090518
  Receipt Date: 20090518
  Transmission Date: 20091009
  Serious: Yes (Other)
  Sender: FDA-Public Use
  Company Number: None

PATIENT
  Age: 54 Year
  Sex: Female

DRUGS (1)
  1. NOVOLOG [Suspect]
     Indication: DIABETES MELLITUS
     Dosage: 50 UNITS IN THE MONRING AND 40 UNITS IN THE EVENING, SC
     Route: 058
     Dates: start: 20090401

REACTIONS (3)
  - DEVICE BREAKAGE [None]
  - DRUG DELIVERY SYSTEM MALFUNCTION [None]
  - NEEDLE ISSUE [None]
